FAERS Safety Report 4848299-1 (Version None)
Quarter: 2005Q4

REPORT INFORMATION
  Report Type: 
  Country: None (occurrence: None)
  Receive Date: 20051115
  Receipt Date: 20050812
  Transmission Date: 20060501
  Serious: Yes (Hospitalization)
  Sender: FDA-Public Use
  Company Number: 414306

PATIENT
  Age: 60 Year
  Sex: Male
  Weight: 76.2 kg

DRUGS (4)
  1. PEGASYS [Suspect]
     Indication: HEPATITIS C VIRUS
     Dosage: 180 MCG 1 PER WEEK SUBCUTANEOUS
     Route: 058
     Dates: start: 20041021, end: 20050815
  2. COPEGUS [Suspect]
     Indication: HEPATITIS C VIRUS
     Dosage: 400 MG 2 PER DAY ORAL
     Route: 048
     Dates: start: 20041021, end: 20050815
  3. HUMALOG [Concomitant]
  4. HUMULIN (BIPHASIC ISOPHANE INSULIN) [Concomitant]

REACTIONS (10)
  - ANAEMIA [None]
  - BLOOD POTASSIUM DECREASED [None]
  - BLOOD URIC ACID INCREASED [None]
  - CELLULITIS [None]
  - DYSURIA [None]
  - ERYTHEMA [None]
  - FEELING HOT [None]
  - OEDEMA PERIPHERAL [None]
  - ORAL CANDIDIASIS [None]
  - PAIN IN EXTREMITY [None]
